FAERS Safety Report 21070120 (Version 1)
Quarter: 2022Q3

REPORT INFORMATION
  Report Type: Spontaneous
  Country: US (occurrence: US)
  Receive Date: 20220712
  Receipt Date: 20220712
  Transmission Date: 20221027
  Serious: Yes (Other)
  Sender: FDA-Public Use
  Company Number: US-PFIZER INC-202200944604

PATIENT
  Age: 48 Year
  Sex: Female

DRUGS (5)
  1. XELJANZ XR [Suspect]
     Active Substance: TOFACITINIB CITRATE
     Indication: Arthritis
     Dosage: 11 MG, DAILY
     Route: 048
     Dates: start: 202205
  2. APPLE CIDER VINEGAR [Concomitant]
     Active Substance: APPLE CIDER VINEGAR
  3. CINNAMON [Concomitant]
     Active Substance: CINNAMON
  4. DAILY-VITE [Concomitant]
  5. GLUCOSAMINE + CHONDROITIN TRIPLE STRENGTH [Concomitant]

REACTIONS (2)
  - Knee operation [Unknown]
  - Chondropathy [Unknown]

NARRATIVE: CASE EVENT DATE: 20220621
